FAERS Safety Report 9390692 (Version 3)
Quarter: 2013Q3

REPORT INFORMATION
  Report Type: Report from Study
  Country: CA (occurrence: CA)
  Receive Date: 20130709
  Receipt Date: 20130827
  Transmission Date: 20140515
  Serious: Yes (Other)
  Sender: FDA-Public Use
  Company Number: CA-JNJFOC-20130618791

PATIENT
  Age: 41 Year
  Sex: Male
  Weight: 67 kg

DRUGS (11)
  1. REMICADE [Suspect]
     Indication: CROHN^S DISEASE
     Dosage: 1ST DOSE: PREVIOUSLY, CONFLICTINGLY, REPORTED AS 500 MG. DATE CONFLICTINGLY REPORTED AS 19-JUN-2013
     Route: 042
     Dates: start: 20130612
  2. REMICADE [Suspect]
     Indication: CROHN^S DISEASE
     Dosage: 2ND DOSE: PREVIOUSLY, CONFLICTINGLY, REPORTED AS 500 MG.
     Route: 042
     Dates: start: 20130626, end: 201307
  3. REMICADE [Suspect]
     Indication: CROHN^S DISEASE
     Route: 042
     Dates: start: 2003
  4. REMICADE [Suspect]
     Indication: CROHN^S DISEASE
     Route: 042
     Dates: start: 2001
  5. HYDROCORTISONE [Concomitant]
     Indication: PREMEDICATION
     Dosage: PRIOR TO 2ND DOSE
     Route: 042
     Dates: start: 20130626
  6. BENADRYL [Concomitant]
     Indication: PREMEDICATION
     Dosage: PRIOR TO 2ND DOSE
     Route: 042
     Dates: start: 20130626
  7. PENTASA [Concomitant]
     Route: 048
  8. BUDESONIDE [Concomitant]
     Route: 048
  9. IMURAN [Concomitant]
     Route: 048
  10. IMODIUM [Concomitant]
     Dosage: 1-2 ONCE DAILY PRN (AS NEEDED)
     Route: 048
  11. TYLENOL NO.3 [Concomitant]
     Dosage: DOSAGE: 4-6 MG, ONCE DAILY PRN (AS NEEDED)
     Route: 048

REACTIONS (17)
  - Arthralgia [Recovering/Resolving]
  - Cough [Not Recovered/Not Resolved]
  - Joint stiffness [Recovering/Resolving]
  - Joint lock [Recovering/Resolving]
  - Oedema [Recovering/Resolving]
  - Infusion related reaction [Not Recovered/Not Resolved]
  - Eye pruritus [Recovering/Resolving]
  - Throat tightness [Recovering/Resolving]
  - Eyelid disorder [Recovering/Resolving]
  - Diarrhoea [Not Recovered/Not Resolved]
  - Vomiting [Not Recovered/Not Resolved]
  - Nausea [Not Recovered/Not Resolved]
  - Urticaria [Recovering/Resolving]
  - Back pain [Not Recovered/Not Resolved]
  - Chills [Recovering/Resolving]
  - Hyperhidrosis [Recovering/Resolving]
  - Pyrexia [Recovering/Resolving]
